FAERS Safety Report 5990620-5 (Version None)
Quarter: 2008Q4

REPORT INFORMATION
  Report Type: 
  Country: None (occurrence: None)
  Receive Date: 20081211
  Receipt Date: 20081202
  Transmission Date: 20090506
  Serious: Yes (Congenital Anomaly)
  Sender: FDA-Public Use
  Company Number: A0760057A

PATIENT
  Sex: Male

DRUGS (2)
  1. COMBIVIR [Suspect]
     Indication: ANTIVIRAL TREATMENT
     Dosage: 2TAB PER DAY
     Dates: start: 20080707
  2. KALETRA [Concomitant]
     Indication: ANTIVIRAL TREATMENT
     Dates: start: 20080707

REACTIONS (2)
  - DRUG EXPOSURE DURING PREGNANCY [None]
  - TRANSPOSITION OF THE GREAT VESSELS [None]
